FAERS Safety Report 24573203 (Version 1)
Quarter: 2024Q4

REPORT INFORMATION
  Report Type: Spontaneous
  Country: US (occurrence: US)
  Receive Date: 20241101
  Receipt Date: 20241101
  Transmission Date: 20250114
  Serious: Yes (Other)
  Sender: ASCENDIS PHARMA
  Company Number: US-ASCENDIS PHARMA-2024US006744

PATIENT

DRUGS (5)
  1. SKYTROFA [Suspect]
     Active Substance: LONAPEGSOMATROPIN-TCGD
     Indication: Growth hormone deficiency
     Dosage: 9.1 MILLIGRAM, WEEKLY
     Route: 058
     Dates: start: 20240924, end: 20241001
  2. SKYTROFA [Suspect]
     Active Substance: LONAPEGSOMATROPIN-TCGD
     Indication: Hypopituitarism
  3. HYDROCORTISONE [Concomitant]
     Active Substance: HYDROCORTISONE
     Indication: Adrenal insufficiency
     Dosage: 7.5 MILLIGRAM, BID
     Route: 048
     Dates: start: 20100118
  4. LEVOTHYROXINE [Concomitant]
     Active Substance: LEVOTHYROXINE
     Indication: Central hypothyroidism
     Dosage: 100 MILLIGRAM, QD
     Route: 048
     Dates: start: 20100222
  5. ESTRACE [Concomitant]
     Active Substance: ESTRADIOL
     Indication: Hypogonadism
     Dosage: 1 MILLIGRAM, QD
     Route: 048
     Dates: start: 20230428

REACTIONS (6)
  - Fatigue [Recovered/Resolved]
  - Headache [Recovered/Resolved]
  - Pyrexia [Recovered/Resolved]
  - Dizziness [Recovered/Resolved]
  - Hypotension [Recovered/Resolved]
  - Tachycardia [Recovered/Resolved]

NARRATIVE: CASE EVENT DATE: 20240927
